FAERS Safety Report 25540207 (Version 1)
Quarter: 2025Q3

REPORT INFORMATION
  Report Type: Spontaneous
  Country: EU (occurrence: EU)
  Receive Date: 20250710
  Receipt Date: 20250710
  Transmission Date: 20251021
  Serious: Yes (Hospitalization, Other)
  Sender: ANI
  Company Number: EU-ANIPHARMA-2025-FR-000097

PATIENT
  Age: 52 Year
  Sex: Male
  Weight: 123 kg

DRUGS (2)
  1. CANDESARTAN CILEXETIL [Suspect]
     Active Substance: CANDESARTAN CILEXETIL
     Indication: Hypertension
     Route: 048
     Dates: start: 20240607, end: 20250317
  2. AMLODIPINE\INDAPAMIDE [Suspect]
     Active Substance: AMLODIPINE\INDAPAMIDE
     Route: 048

REACTIONS (2)
  - Vertigo [Recovering/Resolving]
  - Hydrocephalus [Unknown]

NARRATIVE: CASE EVENT DATE: 20250303
